FAERS Safety Report 8712228 (Version 5)
Quarter: 2012Q4

REPORT INFORMATION
  Report Type: 
  Country: JP (occurrence: JP)
  Receive Date: 20120808
  Receipt Date: 20121108
  Transmission Date: 20130627
  Serious: Yes (Death, Life-Threatening)
  Sender: FDA-Public Use
  Company Number: JP-AMGEN-JPNSP2012048824

PATIENT
  Age: 42 Year
  Sex: Female
  Weight: 46 kg

DRUGS (8)
  1. RANMARK [Suspect]
     Indication: METASTASES TO BONE
     Dosage: UNK UNK, qd
     Route: 058
     Dates: start: 20120628, end: 20120628
  2. DUROTEP MT [Concomitant]
     Dosage: Unknown
     Route: 065
  3. PACLITAXEL [Concomitant]
     Indication: UTERINE CANCER
     Dosage: DOSE 225
     Route: 042
     Dates: start: 20120615, end: 20120615
  4. CARBOPLATIN [Concomitant]
     Indication: UTERINE CANCER
     Dosage: DOSE 500
     Route: 042
     Dates: start: 20120615, end: 20120615
  5. PROMAC [Concomitant]
     Dosage: Unknown
     Route: 065
  6. FENTANYL [Concomitant]
     Dosage: Unknown
     Route: 065
  7. TAXOL [Concomitant]
     Indication: UTERINE CANCER
     Dosage: DOSE 225
     Route: 042
     Dates: start: 20120615, end: 20120615
  8. PARAPLATIN [Concomitant]
     Indication: UTERINE CANCER
     Dosage: DOSE 500
     Route: 042
     Dates: start: 20120615, end: 20120615

REACTIONS (2)
  - Disease progression [Fatal]
  - Hypocalcaemia [Not Recovered/Not Resolved]
